FAERS Safety Report 26045679 (Version 1)
Quarter: 2025Q4

REPORT INFORMATION
  Report Type: Spontaneous
  Country: NP (occurrence: NP)
  Receive Date: 20251114
  Receipt Date: 20251114
  Transmission Date: 20260117
  Serious: Yes (Life-Threatening, Hospitalization, Other)
  Sender: MICRO LABS LIMITED
  Company Number: NP-MICRO LABS LIMITED-ML2025-05879

PATIENT
  Age: 34 Year
  Sex: Female

DRUGS (3)
  1. MISOPROSTOL [Suspect]
     Active Substance: MISOPROSTOL
     Indication: Evacuation of retained products of conception
     Route: 067
  2. MISOPROSTOL [Suspect]
     Active Substance: MISOPROSTOL
     Route: 067
  3. LABETALOL [Concomitant]
     Active Substance: LABETALOL
     Indication: Hypertension

REACTIONS (3)
  - Pulmonary oedema [Recovered/Resolved]
  - Metabolic acidosis [Unknown]
  - Abortion incomplete [Recovered/Resolved]
